APPROVED DRUG PRODUCT: CYCLOBENZAPRINE HYDROCHLORIDE
Active Ingredient: CYCLOBENZAPRINE HYDROCHLORIDE
Strength: 10MG
Dosage Form/Route: TABLET;ORAL
Application: A073683 | Product #001
Applicant: SANDOZ INC
Approved: Feb 26, 1993 | RLD: No | RS: No | Type: DISCN